FAERS Safety Report 10644192 (Version 1)
Quarter: 2014Q4

REPORT INFORMATION
  Report Type: Spontaneous
  Country: GB (occurrence: GB)
  Receive Date: 20141210
  Receipt Date: 20141210
  Transmission Date: 20150529
  Serious: Yes (Death)
  Sender: FDA-Public Use
  Company Number: GB-TEVA-526048ISR

PATIENT
  Age: 68 Year
  Sex: Female

DRUGS (13)
  1. RIFAMPICIN [Concomitant]
     Active Substance: RIFAMPIN
  2. CLINDAMYCIN [Concomitant]
     Active Substance: CLINDAMYCIN\CLINDAMYCIN PHOSPHATE
  3. SPIRONOLACTONE. [Concomitant]
     Active Substance: SPIRONOLACTONE
  4. FLUCLOXACILLIN [Concomitant]
     Active Substance: FLUCLOXACILLIN
  5. LANSOPRAZOLE. [Concomitant]
     Active Substance: LANSOPRAZOLE
  6. FUROSEMIDE. [Suspect]
     Active Substance: FUROSEMIDE
     Indication: OEDEMA
     Dosage: 240 MILLIGRAM DAILY; 480MG OVER 24 HOURS (DOSE REDUCED TO 240MG OVER 24HOURS ON 22/10/14)
     Route: 042
     Dates: start: 20141022, end: 20141028
  7. ATORVASTATIN [Concomitant]
     Active Substance: ATORVASTATIN
  8. LEVOTHYROXINE [Concomitant]
     Active Substance: LEVOTHYROXINE
  9. LINEZOLID. [Concomitant]
     Active Substance: LINEZOLID
  10. FUROSEMIDE. [Suspect]
     Active Substance: FUROSEMIDE
     Indication: OEDEMA
     Dosage: 480 MILLIGRAM DAILY;
     Route: 042
     Dates: start: 20141020, end: 20141021
  11. VANCOMYCIN [Concomitant]
     Active Substance: VANCOMYCIN
  12. COCODAMOL [Concomitant]
     Active Substance: ACETAMINOPHEN\CODEINE PHOSPHATE
  13. DALTEPARIN [Concomitant]
     Active Substance: DALTEPARIN

REACTIONS (1)
  - Toxic epidermal necrolysis [Fatal]

NARRATIVE: CASE EVENT DATE: 20141028
